FAERS Safety Report 5397674-8 (Version None)
Quarter: 2007Q3

REPORT INFORMATION
  Report Type: 
  Country: None (occurrence: None)
  Receive Date: 20070723
  Receipt Date: 20070723
  Transmission Date: 20080115
  Serious: Yes (Life-Threatening, Hospitalization)
  Sender: FDA-Public Use
  Company Number: None

PATIENT
  Age: 30 Year
  Sex: Female
  Weight: 62 kg

DRUGS (2)
  1. LUPRON [Suspect]
     Indication: INFERTILITY FEMALE
     Dosage: 0.25MG DAILY SQ
     Route: 058
     Dates: start: 20070703, end: 20070706
  2. ORTHO CYCLEN-28 [Concomitant]

REACTIONS (5)
  - APHASIA [None]
  - CEREBELLAR INFARCTION [None]
  - HEADACHE [None]
  - TRANSVERSE SINUS THROMBOSIS [None]
  - VISUAL DISTURBANCE [None]
